FAERS Safety Report 11235856 (Version 3)
Quarter: 2016Q1

REPORT INFORMATION
  Report Type: Report from Study
  Country: US (occurrence: US)
  Receive Date: 20150702
  Receipt Date: 20160223
  Transmission Date: 20160525
  Serious: Yes (Other)
  Sender: FDA-Public Use
  Company Number: US-ARIAD PHARMACEUTICALS, INC-2015US005153

PATIENT
  Sex: Female
  Weight: 97.51 kg

DRUGS (3)
  1. ICLUSIG [Suspect]
     Active Substance: PONATINIB
  2. ICLUSIG [Suspect]
     Active Substance: PONATINIB
     Indication: CHRONIC MYELOID LEUKAEMIA
     Dosage: 30 MG, QD
     Route: 048
     Dates: start: 20150213
  3. ICLUSIG [Suspect]
     Active Substance: PONATINIB
     Dosage: 15 MG, QD
     Route: 048

REACTIONS (9)
  - Pericardial effusion [Unknown]
  - Right ventricular systolic pressure increased [Unknown]
  - Neoplasm progression [Not Recovered/Not Resolved]
  - Vomiting [Unknown]
  - Pulmonary hypertension [Unknown]
  - Nausea [Unknown]
  - Diarrhoea [Unknown]
  - Posterior reversible encephalopathy syndrome [Recovered/Resolved]
  - Seizure [Recovered/Resolved]
